FAERS Safety Report 9207950 (Version 1)
Quarter: 2013Q2

REPORT INFORMATION
  Report Type: Spontaneous
  Country: US (occurrence: US)
  Receive Date: 20130403
  Receipt Date: 20130403
  Transmission Date: 20140414
  Serious: Yes (Hospitalization, Other)
  Sender: FDA-Public Use
  Company Number: US-BRISTOL-MYERS SQUIBB COMPANY-18716258

PATIENT
  Sex: Female

DRUGS (1)
  1. ABILIFY [Suspect]
     Dosage: 30MG UNTIL 2010?IN 2010 15MG?DECREASED FROM 10MG TO 5MG
     Dates: start: 2009

REACTIONS (7)
  - Confusional state [Unknown]
  - Loss of consciousness [Unknown]
  - Hallucination [Unknown]
  - Weight decreased [Unknown]
  - Memory impairment [Unknown]
  - Muscle disorder [Unknown]
  - Ataxia [Unknown]
